FAERS Safety Report 6939954-8 (Version None)
Quarter: 2010Q3

REPORT INFORMATION
  Report Type: 
  Country: None (occurrence: None)
  Receive Date: 20100825
  Receipt Date: 20100813
  Transmission Date: 20110219
  Serious: Yes (Other)
  Sender: FDA-Public Use
  Company Number: US-PFIZER INC-2010102181

PATIENT
  Sex: Female
  Weight: 90.7 kg

DRUGS (4)
  1. LYRICA [Suspect]
     Indication: FIBROMYALGIA
     Dosage: 75 MG, 1X/DAY
     Route: 048
     Dates: start: 20070910
  2. LYRICA [Suspect]
     Dosage: 75 MG, 2X/DAY
     Route: 048
  3. FLEXERIL [Concomitant]
     Indication: MUSCLE RELAXANT THERAPY
     Dosage: 10 MG, 1X/DAY
     Route: 048
  4. TRAMADOL HYDROCHLORIDE [Concomitant]
     Indication: FIBROMYALGIA
     Dosage: 50 MG, AS NEEDED
     Route: 048

REACTIONS (6)
  - BLOOD CHOLESTEROL INCREASED [None]
  - EYE PAIN [None]
  - FATIGUE [None]
  - OEDEMA PERIPHERAL [None]
  - THYROID DISORDER [None]
  - VISION BLURRED [None]
